FAERS Safety Report 10852934 (Version 2)
Quarter: 2015Q2

REPORT INFORMATION
  Report Type: Report from Study
  Country: CA (occurrence: CA)
  Receive Date: 20150223
  Receipt Date: 20150402
  Transmission Date: 20150821
  Serious: Yes (Other)
  Sender: FDA-Public Use
  Company Number: CA-AMGEN-CANSL2015015417

PATIENT
  Age: 71 Year
  Sex: Female

DRUGS (3)
  1. CALCIUM [Concomitant]
     Active Substance: CALCIUM
     Dosage: UNK
  2. VITAMIN D                          /00107901/ [Concomitant]
     Active Substance: ERGOCALCIFEROL
     Dosage: UNK
  3. PROLIA [Suspect]
     Active Substance: DENOSUMAB
     Indication: OSTEOPOROSIS POSTMENOPAUSAL
     Dosage: 60 MG, Q6MO
     Route: 058
     Dates: start: 2013

REACTIONS (9)
  - Ear operation [Unknown]
  - Cystitis [Unknown]
  - Bone loss [Unknown]
  - Glucose tolerance impaired [Unknown]
  - Depressed mood [Unknown]
  - Anxiety [Unknown]
  - Spinal pain [Unknown]
  - Irritable bowel syndrome [Unknown]
  - Eczema [Unknown]

NARRATIVE: CASE EVENT DATE: 2013
